FAERS Safety Report 5358356-1 (Version None)
Quarter: 2007Q2

REPORT INFORMATION
  Report Type: 
  Country: None (occurrence: None)
  Receive Date: 20070615
  Receipt Date: 20070606
  Transmission Date: 20071010
  Serious: Yes (Hospitalization)
  Sender: FDA-Public Use
  Company Number: US-JNJFOC-20070601983

PATIENT
  Sex: Female
  Weight: 127.92 kg

DRUGS (1)
  1. REMICADE [Suspect]
     Indication: RHEUMATOID ARTHRITIS
     Route: 042
     Dates: end: 20070426

REACTIONS (3)
  - ATRIAL FIBRILLATION [None]
  - LIVER DISORDER [None]
  - SYSTEMIC LUPUS ERYTHEMATOSUS [None]
